FAERS Safety Report 23756158 (Version 2)
Quarter: 2024Q2

REPORT INFORMATION
  Report Type: Spontaneous
  Country: CN (occurrence: CN)
  Receive Date: 20240418
  Receipt Date: 20240422
  Transmission Date: 20240716
  Serious: Yes (Other)
  Sender: FDA-Public Use
  Company Number: CN-PFIZER INC-PV202400049574

PATIENT
  Age: 34 Year
  Sex: Female
  Weight: 47 kg

DRUGS (1)
  1. SIROLIMUS [Suspect]
     Active Substance: SIROLIMUS
     Indication: Lymphangioleiomyomatosis
     Dosage: 1 MG, 1X/DAY
     Route: 048
     Dates: start: 202205, end: 202209

REACTIONS (3)
  - Drug-induced liver injury [Recovered/Resolved]
  - Pulmonary tuberculosis [Recovering/Resolving]
  - Off label use [Unknown]

NARRATIVE: CASE EVENT DATE: 20220501
